FAERS Safety Report 21389008 (Version 1)
Quarter: 2022Q3

REPORT INFORMATION
  Report Type: Spontaneous
  Country: US (occurrence: None)
  Receive Date: 20220929
  Receipt Date: 20220929
  Transmission Date: 20221026
  Serious: No
  Sender: FDA-Public Use
  Company Number: 2022A323436

PATIENT
  Sex: Male

DRUGS (1)
  1. BUDESONIDE\FORMOTEROL\GLYCOPYRRONIUM [Suspect]
     Active Substance: BUDESONIDE\FORMOTEROL\GLYCOPYRRONIUM
     Dosage: 160/9/4.8 MCG,
     Route: 055

REACTIONS (6)
  - Visual impairment [Unknown]
  - Logorrhoea [Unknown]
  - Device use issue [Unknown]
  - Incorrect dose administered by device [Unknown]
  - Device delivery system issue [Unknown]
  - Intentional device misuse [Unknown]
